FAERS Safety Report 5001851-5 (Version None)
Quarter: 2006Q2

REPORT INFORMATION
  Report Type: 
  Country: None (occurrence: None)
  Receive Date: 20060515
  Receipt Date: 20060508
  Transmission Date: 20061013
  Serious: Yes (Other)
  Sender: FDA-Public Use
  Company Number: GB-GLAXOSMITHKLINE-B0422911A

PATIENT
  Sex: Female

DRUGS (1)
  1. AMOXIL [Suspect]
     Route: 065

REACTIONS (2)
  - DEAFNESS [None]
  - EMOTIONAL DISTRESS [None]
